FAERS Safety Report 5960206-7 (Version None)
Quarter: 2008Q4

REPORT INFORMATION
  Report Type: 
  Country: None (occurrence: None)
  Receive Date: 20081107
  Receipt Date: 20080926
  Transmission Date: 20090506
  Serious: Yes (Hospitalization)
  Sender: FDA-Public Use
  Company Number: 2008BH003873

PATIENT
  Age: 45 Year
  Sex: Female
  Weight: 92.5338 kg

DRUGS (15)
  1. SUPRANE [Suspect]
     Indication: MAINTENANCE OF ANAESTHESIA
     Dosage: 4.4 PCT;CONTINUOUS; ENDTR
     Route: 007
     Dates: start: 20080325, end: 20080325
  2. FENTANYL CITRATE [Suspect]
     Indication: MAINTENANCE OF ANAESTHESIA
     Dosage: 650 UG;PRN;IV
     Route: 042
     Dates: start: 20080325, end: 20080325
  3. NEOSTIGMINE METHYLSULFATE [Suspect]
     Indication: ANAESTHESIA REVERSAL
     Dosage: 0.2 MG;ONCE;IV
     Route: 042
     Dates: start: 20080325, end: 20080325
  4. DILAUDID [Suspect]
     Indication: MAINTENANCE OF ANAESTHESIA
     Dosage: 2 MG;ONCE;IV
     Route: 042
     Dates: start: 20080325, end: 20080325
  5. MULTIVITAMIN WITH IRON [Suspect]
     Indication: MEDICAL DIET
     Dosage: 1; EVERY DAY; PO
     Route: 048
  6. BLINDED [Suspect]
     Indication: BLINDNESS
     Dosage: 4;ONCE PO
     Route: 048
     Dates: start: 20080325, end: 20080325
  7. BLINDED [Suspect]
     Indication: PROPHYLAXIS OF NAUSEA AND VOMITING
     Dosage: 4;ONCE PO
     Route: 048
     Dates: start: 20080325, end: 20080325
  8. SYNTHROID [Concomitant]
  9. VERSED [Concomitant]
  10. ROCURONIUM BROMIDE [Concomitant]
  11. ANCEF [Concomitant]
  12. LIDOCAINE [Concomitant]
  13. PROPOFOL [Concomitant]
  14. VECURONIUM BROMIDE [Concomitant]
  15. GLYCOPYRROLATE [Concomitant]

REACTIONS (8)
  - BLADDER SPASM [None]
  - CYSTOSTOMY [None]
  - DIZZINESS [None]
  - HAEMATURIA [None]
  - HAEMORRHAGE [None]
  - NAUSEA [None]
  - PYREXIA [None]
  - TACHYCARDIA [None]
